FAERS Safety Report 10748153 (Version 1)
Quarter: 2015Q1

REPORT INFORMATION
  Report Type: Spontaneous
  Country: US (occurrence: US)
  Receive Date: 20150129
  Receipt Date: 20150129
  Transmission Date: 20150721
  Serious: Yes (Hospitalization)
  Sender: FDA-Public Use
  Company Number: US-BEH-2015048123

PATIENT
  Age: 49 Year
  Sex: Female
  Weight: 78 kg

DRUGS (20)
  1. METFORMIN [Concomitant]
     Active Substance: METFORMIN HYDROCHLORIDE
  2. GABAPENTIN. [Concomitant]
     Active Substance: GABAPENTIN
  3. VENTOLIN HFA [Concomitant]
     Active Substance: ALBUTEROL SULFATE
  4. EPIPEN [Concomitant]
     Active Substance: EPINEPHRINE
  5. ALBUTEROL. [Concomitant]
     Active Substance: ALBUTEROL
  6. ZEMAIRA [Suspect]
     Active Substance: .ALPHA.1-PROTEINASE INHIBITOR HUMAN
     Indication: EMPHYSEMA
     Dosage: 1018 MG VIAL; 60 MG/KG WEEKLY
     Route: 042
  7. METOPROLOL SUCCINATE. [Concomitant]
     Active Substance: METOPROLOL SUCCINATE
  8. PAXIL [Concomitant]
     Active Substance: PAROXETINE HYDROCHLORIDE
  9. SPIRIVA [Concomitant]
     Active Substance: TIOTROPIUM BROMIDE MONOHYDRATE
  10. SORIATANE [Concomitant]
     Active Substance: ACITRETIN
  11. DIPHENHYDRAMINE [Concomitant]
     Active Substance: DIPHENHYDRAMINE
  12. CINNAMON. [Concomitant]
     Active Substance: CINNAMON
  13. MUPIROCIN. [Concomitant]
     Active Substance: MUPIROCIN
  14. JANUVIA [Concomitant]
     Active Substance: SITAGLIPTIN PHOSPHATE
  15. LIDOCAINE PRILOCAINE [Concomitant]
  16. HUMIRA [Concomitant]
     Active Substance: ADALIMUMAB
  17. IBUPROFEN. [Concomitant]
     Active Substance: IBUPROFEN
  18. SODIUM CHLORIDE. [Concomitant]
     Active Substance: SODIUM CHLORIDE
  19. ENBREL [Concomitant]
     Active Substance: ETANERCEPT
  20. CLOBETASOL [Concomitant]
     Active Substance: CLOBETASOL

REACTIONS (1)
  - Diabetic ketoacidosis [Unknown]

NARRATIVE: CASE EVENT DATE: 20150111
